FAERS Safety Report 7690672-0 (Version None)
Quarter: 2011Q3

REPORT INFORMATION
  Report Type: 
  Country: None (occurrence: None)
  Receive Date: 20110818
  Receipt Date: 20110817
  Transmission Date: 20111222
  Serious: Yes (Other)
  Sender: FDA-Public Use
  Company Number: US-PFIZER INC-2011127709

PATIENT
  Sex: Female

DRUGS (2)
  1. PROTONIX [Suspect]
     Indication: GASTROOESOPHAGEAL REFLUX DISEASE
     Dosage: 40 MG
     Route: 042
     Dates: start: 20110603, end: 20110608
  2. PROTONIX [Suspect]
     Indication: PROPHYLAXIS

REACTIONS (3)
  - ANOSMIA [None]
  - AGEUSIA [None]
  - ANAPHYLACTIC REACTION [None]
